FAERS Safety Report 14305190 (Version 1)
Quarter: 2017Q4

REPORT INFORMATION
  Report Type: Spontaneous
  Country: US (occurrence: US)
  Receive Date: 20171219
  Receipt Date: 20171219
  Transmission Date: 20180321
  Serious: Yes (Death, Other)
  Sender: FDA-Public Use
  Company Number: US-OTSUKA-DJ201402355

PATIENT
  Sex: Female
  Weight: 77.1 kg

DRUGS (1)
  1. ABILIFY [Suspect]
     Active Substance: ARIPIPRAZOLE
     Indication: PRODUCT USED FOR UNKNOWN INDICATION
     Dosage: 10 MG, UNK
     Route: 065

REACTIONS (5)
  - Bacterial sepsis [Fatal]
  - Anaemia [Fatal]
  - Myocardial infarction [Fatal]
  - Influenza [Fatal]
  - Empyema [Fatal]
